FAERS Safety Report 13061623 (Version 1)
Quarter: 2016Q4

REPORT INFORMATION
  Report Type: Spontaneous
  Country: US (occurrence: US)
  Receive Date: 20161226
  Receipt Date: 20161226
  Transmission Date: 20170207
  Serious: No
  Sender: FDA-Public Use
  Company Number: US-NOVEN PHARMACEUTICALS, INC.-US2016001717

PATIENT

DRUGS (3)
  1. MINIVELLE [Suspect]
     Active Substance: ESTRADIOL
     Indication: HOT FLUSH
     Dosage: 0.1 MG, 2/WK
     Route: 062
     Dates: start: 2012, end: 20160628
  2. PROGESTERONE. [Concomitant]
     Active Substance: PROGESTERONE
  3. MINIVELLE [Suspect]
     Active Substance: ESTRADIOL
     Indication: NIGHT SWEATS
     Dosage: APPLIED TWO, 0.1MG PATCHES TOGETHER, 2/WK
     Route: 062
     Dates: start: 20160629

REACTIONS (3)
  - No adverse event [Unknown]
  - Wrong technique in product usage process [Not Recovered/Not Resolved]
  - Overdose [Not Recovered/Not Resolved]

NARRATIVE: CASE EVENT DATE: 20160629
